FAERS Safety Report 11060565 (Version 1)
Quarter: 2015Q2

REPORT INFORMATION
  Report Type: Spontaneous
  Country: PT (occurrence: PT)
  Receive Date: 20150423
  Receipt Date: 20150423
  Transmission Date: 20150821
  Serious: Yes (Hospitalization)
  Sender: FDA-Public Use
  Company Number: PT-MYLANLABS-2015M1012097

PATIENT

DRUGS (1)
  1. ALENDRONATE [Suspect]
     Active Substance: ALENDRONATE SODIUM
     Indication: ARTHRALGIA
     Dosage: 10 MG / DAY

REACTIONS (6)
  - Chest pain [Unknown]
  - Dysphagia [Unknown]
  - Oesophageal obstruction [Recovering/Resolving]
  - Gastrointestinal stenosis [Recovered/Resolved]
  - Oesophagitis [Recovering/Resolving]
  - Intestinal ulcer [Recovering/Resolving]
